FAERS Safety Report 12765091 (Version 1)
Quarter: 2016Q3

REPORT INFORMATION
  Report Type: Report from Study
  Country: CA (occurrence: CA)
  Receive Date: 20160921
  Receipt Date: 20160921
  Transmission Date: 20161109
  Serious: Yes (Hospitalization)
  Sender: FDA-Public Use
  Company Number: CA-AMGEN-CANSL2016124625

PATIENT
  Sex: Male

DRUGS (1)
  1. ENBREL [Suspect]
     Active Substance: ETANERCEPT
     Indication: EXPOSURE DURING PREGNANCY
     Dosage: 50 MG, UNK
     Route: 064
     Dates: start: 20110628, end: 2014

REACTIONS (2)
  - Infantile apnoea [Recovered/Resolved]
  - Face presentation [Recovered/Resolved]

NARRATIVE: CASE EVENT DATE: 2014
